FAERS Safety Report 6654048-7 (Version None)
Quarter: 2010Q1

REPORT INFORMATION
  Report Type: 
  Country: None (occurrence: None)
  Receive Date: 20100326
  Receipt Date: 20100315
  Transmission Date: 20100710
  Serious: Yes (Death, Other)
  Sender: FDA-Public Use
  Company Number: US-ELI_LILLY_AND_COMPANY-US201002002695

PATIENT
  Sex: Female
  Weight: 58.9 kg

DRUGS (9)
  1. EFFIENT [Suspect]
     Indication: ANTIPLATELET THERAPY
     Dosage: 60 MG LOADING DOSE
     Route: 048
     Dates: start: 20100128, end: 20100128
  2. EFFIENT [Suspect]
     Dosage: 10 MG, DAILY (1/D)
  3. INTEGRILIN [Concomitant]
     Indication: ANTIPLATELET THERAPY
     Dosage: 5 ML, X2
     Route: 040
     Dates: start: 20100128, end: 20100128
  4. INTEGRILIN [Concomitant]
     Dosage: 3.5 ML, EVERY HOUR
     Route: 042
     Dates: start: 20100128, end: 20100128
  5. HEPARIN [Concomitant]
     Indication: ANTICOAGULANT THERAPY
     Dosage: 3500 U, UNK
     Route: 042
     Dates: start: 20100128, end: 20100128
  6. ASPIRIN [Concomitant]
  7. NITROGLYCERIN [Concomitant]
     Indication: HYPERTENSION
     Dosage: 20 UG/MIN
     Route: 042
     Dates: start: 20100128, end: 20100128
  8. XYLOCAINE [Concomitant]
     Indication: ANAESTHESIA
     Route: 058
  9. LOPRESSOR [Concomitant]
     Dosage: UNK, UNK
     Dates: start: 20100128, end: 20100128

REACTIONS (4)
  - ACIDOSIS [None]
  - HYPOTENSION [None]
  - RETROPERITONEAL HAEMORRHAGE [None]
  - THROMBOSIS IN DEVICE [None]
